FAERS Safety Report 5158478-4 (Version None)
Quarter: 2006Q4

REPORT INFORMATION
  Report Type: 
  Country: None (occurrence: None)
  Receive Date: 20061116
  Receipt Date: 20061013
  Transmission Date: 20070319
  Serious: Yes (Hospitalization, Other)
  Sender: FDA-Public Use
  Company Number: PHBS2006JP14110

PATIENT
  Age: 32 Year
  Sex: Male

DRUGS (2)
  1. NEORAL [Suspect]
     Indication: NEPHROTIC SYNDROME
     Dosage: 100 MG/D (MEAN), ORAL
     Route: 048
     Dates: start: 19930201
  2. PREDNISOLONE TAB [Suspect]
     Indication: NEPHROTIC SYNDROME
     Dosage: 20 MG/D, ORAL
     Route: 048
     Dates: start: 19921001

REACTIONS (5)
  - DISEASE PROGRESSION [None]
  - DISEASE RECURRENCE [None]
  - DRUG INEFFECTIVE [None]
  - NEPHROTIC SYNDROME [None]
  - RENAL VESSEL DISORDER [None]
